FAERS Safety Report 6319078-3 (Version None)
Quarter: 2009Q3

REPORT INFORMATION
  Report Type: 
  Country: None (occurrence: None)
  Receive Date: 20090821
  Receipt Date: 20080801
  Transmission Date: 20100115
  Serious: No
  Sender: FDA-Public Use
  Company Number: US-ABBOTT-08P-163-0467599-00

PATIENT
  Sex: Female
  Weight: 88.53 kg

DRUGS (4)
  1. NIASPAN [Suspect]
     Indication: BLOOD CHOLESTEROL INCREASED
     Dosage: AT BEDTIME
     Dates: end: 20080731
  2. PIOGLITAZONE [Concomitant]
     Indication: DIABETES MELLITUS
  3. AMITRIPTYLINE [Concomitant]
     Indication: UNEVALUABLE EVENT
  4. LEVOTHYROXINE [Concomitant]
     Indication: HYPOTHYROIDISM

REACTIONS (1)
  - PRURITUS [None]
